FAERS Safety Report 8383323-3 (Version None)
Quarter: 2012Q2

REPORT INFORMATION
  Report Type: 
  Country: None (occurrence: None)
  Receive Date: 20120524
  Receipt Date: 20120521
  Transmission Date: 20120825
  Serious: Yes (Other)
  Sender: FDA-Public Use
  Company Number: US-PFIZER INC-2012100786

PATIENT
  Sex: Female
  Weight: 87 kg

DRUGS (5)
  1. FLECTOR [Suspect]
     Indication: PAIN
     Dosage: UNK, DAILY
     Route: 062
     Dates: start: 20111101
  2. LORTAB [Concomitant]
     Indication: BACK DISORDER
     Dosage: 7.5 MG, 2X/DAY
     Route: 048
  3. DEPAKOTE [Concomitant]
     Indication: EPILEPSY
     Dosage: 250 MG, 2X/DAY
     Route: 048
  4. FLECTOR [Suspect]
     Indication: NERVOUS SYSTEM DISORDER
  5. TRAZODONE [Concomitant]
     Indication: INSOMNIA
     Dosage: 50 MG, DAILY

REACTIONS (3)
  - EYE DISORDER [None]
  - DRUG INEFFECTIVE [None]
  - INCORRECT DOSE ADMINISTERED [None]
